FAERS Safety Report 8287010-1 (Version None)
Quarter: 2012Q2

REPORT INFORMATION
  Report Type: 
  Country: None (occurrence: None)
  Receive Date: 20120416
  Receipt Date: 20120410
  Transmission Date: 20120825
  Serious: Yes (Death)
  Sender: FDA-Public Use
  Company Number: JP-SANOFI-AVENTIS-2012SA025744

PATIENT

DRUGS (2)
  1. DEXAMETHASONE [Concomitant]
     Indication: PREMEDICATION
     Dosage: 30 MINUTES BEFORE DOCETAXEL THERAPY
     Route: 042
  2. DOCETAXEL [Suspect]
     Dosage: OVER 1 HR
     Route: 042

REACTIONS (1)
  - CARDIAC FAILURE ACUTE [None]
